FAERS Safety Report 10179200 (Version 2)
Quarter: 2014Q2

REPORT INFORMATION
  Report Type: Spontaneous
  Country: US (occurrence: US)
  Receive Date: 20140519
  Receipt Date: 20140605
  Transmission Date: 20141212
  Serious: No
  Sender: FDA-Public Use
  Company Number: US-PFIZER INC-2014136156

PATIENT
  Age: 73 Year
  Sex: Female
  Weight: 58.95 kg

DRUGS (4)
  1. CHANTIX [Suspect]
     Indication: SMOKING CESSATION THERAPY
     Dosage: 0.5 MG, DAILY
     Dates: start: 20140120, end: 2014
  2. CHANTIX [Suspect]
     Dosage: UNK
     Dates: start: 2014, end: 2014
  3. LEVOFLOXACIN [Concomitant]
     Indication: BRONCHITIS CHRONIC
     Dosage: 500 MG, DAILY
  4. PROMETHAZINE [Concomitant]
     Indication: BRONCHITIS CHRONIC
     Dosage: UNK

REACTIONS (1)
  - Dyspnoea [Unknown]
